FAERS Safety Report 23522580 (Version 2)
Quarter: 2024Q1

REPORT INFORMATION
  Report Type: Spontaneous
  Country: US (occurrence: US)
  Receive Date: 20240214
  Receipt Date: 20240228
  Transmission Date: 20240410
  Serious: Yes (Death, Hospitalization, Other)
  Sender: FDA-Public Use
  Company Number: US-Axellia-005055

PATIENT
  Age: 65 Year
  Sex: Male
  Weight: 116.0 kg

DRUGS (5)
  1. VANCOMYCIN [Suspect]
     Active Substance: VANCOMYCIN
     Indication: Sepsis
     Dosage: STRENGTH: 1 GRAM/VIAL, DOSE: 2G/500 ML X1 STAT, INFUSION PUMP 250 ML/HOURS
     Route: 042
     Dates: start: 20240125, end: 20240126
  2. ZOSYN [Concomitant]
     Active Substance: PIPERACILLIN SODIUM\TAZOBACTAM SODIUM
     Indication: Product used for unknown indication
     Dosage: 4.5 G AT 21:12
     Route: 042
     Dates: start: 20240125, end: 20240125
  3. ALBUMIN HUMAN [Concomitant]
     Active Substance: ALBUMIN HUMAN
     Route: 042
     Dates: start: 20240125, end: 20240126
  4. HEPARIN [Concomitant]
     Active Substance: HEPARIN SODIUM
     Dosage: 7888 UNITS
     Route: 042
     Dates: start: 20240125
  5. SODIUM CHLORIDE [Concomitant]
     Active Substance: SODIUM CHLORIDE
     Dosage: 500 ML
     Dates: start: 20240125, end: 20240125

REACTIONS (1)
  - Cardiac arrest [Fatal]

NARRATIVE: CASE EVENT DATE: 20240126
